FAERS Safety Report 25099289 (Version 2)
Quarter: 2025Q1

REPORT INFORMATION
  Report Type: Report from Study
  Country: SK (occurrence: SK)
  Receive Date: 20250320
  Receipt Date: 20250327
  Transmission Date: 20250408
  Serious: Yes (Other)
  Sender: ABBVIE
  Company Number: SK-ABBVIE-6184538

PATIENT
  Sex: Female

DRUGS (1)
  1. CARBIDOPA\LEVODOPA [Suspect]
     Active Substance: CARBIDOPA\LEVODOPA
     Indication: Parkinson^s disease
     Route: 058

REACTIONS (4)
  - Neoplasm malignant [Unknown]
  - Pain [Unknown]
  - Postoperative adhesion [Unknown]
  - Asthenia [Recovered/Resolved]
